FAERS Safety Report 15262089 (Version 1)
Quarter: 2018Q3

REPORT INFORMATION
  Report Type: Spontaneous
  Country: GB (occurrence: GB)
  Receive Date: 20180809
  Receipt Date: 20180809
  Transmission Date: 20181010
  Serious: Yes (Hospitalization, Other)
  Sender: FDA-Public Use
  Company Number: GB-TEVA-2018-GB-937103

PATIENT
  Age: 78 Year
  Sex: Female

DRUGS (1)
  1. CICLOSPORIN [Suspect]
     Active Substance: CYCLOSPORINE
     Indication: BONE MARROW TRANSPLANT
     Dosage: 250 MILLIGRAM DAILY;
     Route: 065
     Dates: start: 201601, end: 201606

REACTIONS (5)
  - Therapy non-responder [Unknown]
  - Neutropenia [Unknown]
  - Diabetes mellitus [Unknown]
  - Thrombocytopenia [Unknown]
  - Neutropenic sepsis [Unknown]

NARRATIVE: CASE EVENT DATE: 201604
